FAERS Safety Report 15082797 (Version 1)
Quarter: 2018Q2

REPORT INFORMATION
  Report Type: Spontaneous
  Country: NO (occurrence: NO)
  Receive Date: 20180628
  Receipt Date: 20180628
  Transmission Date: 20180711
  Serious: Yes (Other)
  Sender: FDA-Public Use
  Company Number: NO-TEVA-2018-NO-871957

PATIENT
  Age: 81 Year
  Sex: Male

DRUGS (1)
  1. PINEX FORTE [Suspect]
     Active Substance: ACETAMINOPHEN\CODEINE PHOSPHATE
     Indication: HEADACHE
     Dosage: 8 DOSAGE FORMS DAILY; 2 TABLETS 4 TIMES DAILY
     Route: 048
     Dates: start: 2017

REACTIONS (3)
  - Melaena [Recovered/Resolved]
  - Internal haemorrhage [Recovered/Resolved]
  - Constipation [Recovered/Resolved]
